FAERS Safety Report 10730400 (Version 2)
Quarter: 2015Q1

REPORT INFORMATION
  Report Type: Spontaneous
  Country: HR (occurrence: HR)
  Receive Date: 20150122
  Receipt Date: 20150123
  Transmission Date: 20150721
  Serious: Yes (Life-Threatening, Hospitalization)
  Sender: FDA-Public Use
  Company Number: HR-JNJFOC-20150113280

PATIENT
  Age: 44 Year
  Sex: Female
  Weight: 90 kg

DRUGS (8)
  1. DECORTIN [Concomitant]
     Active Substance: PREDNISONE
     Indication: RHEUMATOID ARTHRITIS
     Route: 065
  2. BRUFEN [Concomitant]
     Active Substance: IBUPROFEN
     Route: 065
  3. FOLACIN [Concomitant]
     Active Substance: FOLIC ACID
     Route: 065
  4. METOPRAM [Concomitant]
     Route: 065
  5. LORATADINE. [Concomitant]
     Active Substance: LORATADINE
     Indication: DERMATITIS CONTACT
     Route: 065
  6. EUTHYROX [Concomitant]
     Active Substance: LEVOTHYROXINE SODIUM
     Route: 065
  7. METHOTREXATE SODIUM. [Concomitant]
     Active Substance: METHOTREXATE SODIUM
     Indication: RHEUMATOID ARTHRITIS
     Route: 065
  8. REMICADE [Suspect]
     Active Substance: INFLIXIMAB
     Indication: RHEUMATOID ARTHRITIS
     Route: 042
     Dates: start: 20131111, end: 20141007

REACTIONS (4)
  - Anaphylactic reaction [Recovered/Resolved]
  - Infusion related reaction [Recovered/Resolved]
  - Blood pressure increased [Recovered/Resolved]
  - Vertigo [Recovered/Resolved]

NARRATIVE: CASE EVENT DATE: 20141007
